FAERS Safety Report 5681105-4 (Version None)
Quarter: 2008Q1

REPORT INFORMATION
  Report Type: 
  Country: None (occurrence: None)
  Receive Date: 20080325
  Receipt Date: 20080321
  Transmission Date: 20080703
  Serious: Yes (Death)
  Sender: FDA-Public Use
  Company Number: 2007SP017578

PATIENT
  Age: 63 Year
  Sex: Male
  Weight: 61 kg

DRUGS (13)
  1. TEMODAL [Suspect]
     Indication: ASTROCYTOMA
     Dosage: SEE IMAGE
     Route: 048
     Dates: start: 20061014, end: 20061018
  2. TEMODAL [Suspect]
     Indication: ASTROCYTOMA
     Dosage: SEE IMAGE
     Route: 048
     Dates: start: 20061111, end: 20061115
  3. TEMODAL [Suspect]
     Indication: ASTROCYTOMA
     Dosage: SEE IMAGE
     Route: 048
     Dates: start: 20061209, end: 20061213
  4. TEMODAL [Suspect]
     Indication: ASTROCYTOMA
     Dosage: SEE IMAGE
     Route: 048
     Dates: start: 20070106, end: 20070110
  5. TEMODAL [Suspect]
     Indication: ASTROCYTOMA
     Dosage: SEE IMAGE
     Route: 048
     Dates: start: 20070203, end: 20070207
  6. NAVOBAN [Concomitant]
  7. RINDERON [Concomitant]
  8. GASTER D [Concomitant]
  9. GLYSENNID [Concomitant]
  10. ZONISAMIDE [Concomitant]
  11. MAGNESIUM OXIDE [Concomitant]
  12. PRIMPERAN INJ [Concomitant]
  13. MYSLEE [Concomitant]

REACTIONS (5)
  - ACCIDENT [None]
  - DEPRESSED LEVEL OF CONSCIOUSNESS [None]
  - FALL [None]
  - RESPIRATORY DISORDER [None]
  - SPINAL COMPRESSION FRACTURE [None]
